FAERS Safety Report 23269489 (Version 1)
Quarter: 2023Q4

REPORT INFORMATION
  Report Type: Spontaneous
  Country: KR (occurrence: KR)
  Receive Date: 20231207
  Receipt Date: 20231207
  Transmission Date: 20240110
  Serious: Yes (Death, Life-Threatening, Hospitalization, Other)
  Sender: FDA-Public Use
  Company Number: KR-KYOWAKIRIN-2023KK019187

PATIENT
  Age: 34 Year
  Sex: Female

DRUGS (1)
  1. ROMIPLOSTIM [Suspect]
     Active Substance: ROMIPLOSTIM
     Indication: Platelet count decreased
     Dosage: STARTING AT 1 MICROGRAM/KG,   DEPENDING ON PLATELET COUNT CONTINUOUSLY ADJUSTING CAPACITY UP TO MAX
     Route: 065

REACTIONS (10)
  - Haematoma [Fatal]
  - Brain oedema [Fatal]
  - Myelofibrosis [Fatal]
  - Cerebral haemorrhage [Fatal]
  - Loss of consciousness [Unknown]
  - Haemorrhage [Unknown]
  - Thrombocytopenia [Unknown]
  - Leukocytosis [Unknown]
  - Anaemia [Unknown]
  - Therapy non-responder [Unknown]
